FAERS Safety Report 12330726 (Version 1)
Quarter: 2016Q2

REPORT INFORMATION
  Report Type: Spontaneous
  Country: US (occurrence: None)
  Receive Date: 20160503
  Receipt Date: 20160503
  Transmission Date: 20160815
  Serious: Yes (Death, Life-Threatening, Hospitalization)
  Sender: FDA-Public Use
  Company Number: None

PATIENT
  Age: 58 Year
  Sex: Male
  Weight: 98.7 kg

DRUGS (3)
  1. AMIODARONE [Suspect]
     Active Substance: AMIODARONE
     Indication: SUPRAVENTRICULAR TACHYCARDIA
     Dates: start: 20160221, end: 20160308
  2. AMIODARONE [Suspect]
     Active Substance: AMIODARONE
     Indication: ATRIAL FIBRILLATION
     Dates: start: 20160221, end: 20160308
  3. AMIODARONE [Suspect]
     Active Substance: AMIODARONE
     Route: 048
     Dates: start: 20160309, end: 20160326

REACTIONS (10)
  - International normalised ratio abnormal [None]
  - Atrial flutter [None]
  - Hypotension [None]
  - Bone marrow toxicity [None]
  - Acute hepatic failure [None]
  - Respiratory failure [None]
  - Agitation [None]
  - No therapeutic response [None]
  - Hyperbilirubinaemia [None]
  - Pancytopenia [None]

NARRATIVE: CASE EVENT DATE: 20160326
